FAERS Safety Report 8807327 (Version 2)
Quarter: 2012Q4

REPORT INFORMATION
  Report Type: Report from Study
  Country: US (occurrence: US)
  Receive Date: 20120925
  Receipt Date: 20121227
  Transmission Date: 20130627
  Serious: Yes (Hospitalization)
  Sender: FDA-Public Use
  Company Number: US-ROCHE-1133572

PATIENT
  Age: 89 Year
  Sex: Male

DRUGS (9)
  1. RANIBIZUMAB [Suspect]
     Indication: PRODUCT USED FOR UNKNOWN INDICATION
     Dosage: last dose prior to SAE 15/Aug/2012
     Route: 050
     Dates: start: 20100412
  2. RANIBIZUMAB [Suspect]
     Dosage: last dose prior to SAE 15/Aug/2012
     Route: 050
     Dates: start: 20120815, end: 20120815
  3. RANIBIZUMAB [Suspect]
     Dosage: last dose prior to SAE 15/Aug/2012
     Route: 050
     Dates: start: 20121219
  4. WARFARIN [Concomitant]
     Route: 065
     Dates: start: 20090701, end: 20090817
  5. BENDROFLUMETHIAZIDE [Concomitant]
     Route: 065
     Dates: start: 20090810
  6. FELODIPINE [Concomitant]
     Route: 065
     Dates: start: 20090112
  7. HYDROXYZINE [Concomitant]
     Route: 065
     Dates: start: 201208, end: 20120817
  8. ASPIRIN [Concomitant]
     Route: 048
     Dates: start: 20120817, end: 20120830
  9. SIMVASTATIN [Concomitant]
     Route: 065
     Dates: start: 20120820

REACTIONS (1)
  - Cerebrovascular accident [Recovered/Resolved with Sequelae]
